FAERS Safety Report 22680848 (Version 2)
Quarter: 2023Q4

REPORT INFORMATION
  Report Type: Spontaneous
  Country: US (occurrence: US)
  Receive Date: 20230707
  Receipt Date: 20231005
  Transmission Date: 20240110
  Serious: No
  Sender: FDA-Public Use
  Company Number: US-AUROBINDO-AUR-APL-2023-014222

PATIENT
  Age: 80 Year

DRUGS (1)
  1. NEBIVOLOL [Suspect]
     Active Substance: NEBIVOLOL
     Indication: Product used for unknown indication
     Dosage: 1 DOSAGE FORM, TWO TIMES A DAY
     Route: 065
     Dates: start: 20230322

REACTIONS (6)
  - Flushing [Unknown]
  - Dyspepsia [Unknown]
  - Erythema [Unknown]
  - Product use complaint [Unknown]
  - Product coating issue [Unknown]
  - Product substitution issue [Unknown]
